FAERS Safety Report 9553871 (Version 1)
Quarter: 2013Q3

REPORT INFORMATION
  Report Type: Spontaneous
  Country: GB (occurrence: None)
  Receive Date: 20130923
  Receipt Date: 20130923
  Transmission Date: 20140515
  Serious: Yes (Other)
  Sender: FDA-Public Use
  Company Number: FK201304236

PATIENT
  Age: 20 Week
  Sex: 0

DRUGS (1)
  1. ONDANSETRON [Suspect]
     Indication: VOMITING IN PREGNANCY
     Dates: start: 20130301, end: 20130518

REACTIONS (3)
  - Intestinal obstruction [None]
  - Maternal drugs affecting foetus [None]
  - Foetal disorder [None]
